FAERS Safety Report 6394045-2 (Version None)
Quarter: 2009Q4

REPORT INFORMATION
  Report Type: 
  Country: None (occurrence: None)
  Receive Date: 20091008
  Receipt Date: 20091005
  Transmission Date: 20100525
  Serious: Yes (Death)
  Sender: FDA-Public Use
  Company Number: PHHO2009FR12343

PATIENT
  Sex: Male

DRUGS (11)
  1. IMATINIB MESYLATE [Suspect]
     Indication: CHRONIC MYELOID LEUKAEMIA
     Dosage: 400 MG DAILY
     Route: 048
     Dates: start: 20081202, end: 20090901
  2. PERMIXON [Concomitant]
  3. LERCANIDIPINE [Concomitant]
  4. FUROSEMIDE [Concomitant]
  5. OMEPRAZOLE [Concomitant]
  6. LORATADINE [Concomitant]
  7. FENOFIBRATE [Concomitant]
  8. POTASSIUM CHLORIDE [Concomitant]
  9. THIOCOLCHICOSIDE [Concomitant]
  10. GYNERGENE CAFEINE [Concomitant]
  11. ALFUZOSIN HCL [Concomitant]

REACTIONS (1)
  - MYOCARDIAL INFARCTION [None]
